FAERS Safety Report 10924161 (Version 1)
Quarter: 2015Q1

REPORT INFORMATION
  Report Type: Report from Study
  Country: CA (occurrence: CA)
  Receive Date: 20150318
  Receipt Date: 20150318
  Transmission Date: 20150721
  Serious: Yes (Death, Hospitalization)
  Sender: FDA-Public Use
  Company Number: CA-JNJFOC-20150306525

PATIENT
  Age: 33 Year
  Sex: Female

DRUGS (1)
  1. TYLENOL EXTRA STRENGTH [Suspect]
     Active Substance: ACETAMINOPHEN
     Indication: PRODUCT USED FOR UNKNOWN INDICATION
     Route: 048
     Dates: start: 20030925, end: 20030925

REACTIONS (8)
  - Metabolic acidosis [Fatal]
  - Renal failure [Fatal]
  - Overdose [Fatal]
  - Acute respiratory distress syndrome [Fatal]
  - Acute hepatic failure [Fatal]
  - Coagulopathy [Fatal]
  - Pneumonia aspiration [Fatal]
  - Septic shock [Fatal]
